FAERS Safety Report 7951652-0 (Version None)
Quarter: 2011Q4

REPORT INFORMATION
  Report Type: 
  Country: None (occurrence: None)
  Receive Date: 20111201
  Receipt Date: 20111124
  Transmission Date: 20120403
  Serious: Yes (Hospitalization, Disabling)
  Sender: FDA-Public Use
  Company Number: FI-B.I. PHARMACEUTICALS,INC./RIDGEFIELD-2011-SW-00493SF

PATIENT
  Sex: Male

DRUGS (7)
  1. ATACAND [Concomitant]
     Indication: HYPERTENSION
     Dosage: 16 MG
  2. ALBETOL [Concomitant]
     Indication: HYPERTENSION
     Dosage: 100 MG
  3. CRESTOR [Concomitant]
     Indication: HYPERCHOLESTEROLAEMIA
  4. DIURAMIN MITE [Concomitant]
     Indication: HYPERTENSION
  5. PRADAXA [Suspect]
     Indication: CEREBROVASCULAR ACCIDENT PROPHYLAXIS
     Dosage: 300 MG
     Dates: start: 20110829
  6. PRADAXA [Suspect]
     Indication: ATRIAL FIBRILLATION
  7. JANUVIA [Concomitant]
     Indication: DIABETES MELLITUS
     Dosage: 100 MG

REACTIONS (2)
  - TRANSIENT ISCHAEMIC ATTACK [None]
  - CEREBROVASCULAR ACCIDENT [None]
